FAERS Safety Report 20966880 (Version 1)
Quarter: 2022Q2

REPORT INFORMATION
  Report Type: Spontaneous
  Country: US (occurrence: US)
  Receive Date: 20220616
  Receipt Date: 20220616
  Transmission Date: 20220721
  Serious: Yes (Other)
  Sender: FDA-Public Use
  Company Number: US-Accord-266070

PATIENT
  Age: 66 Year
  Sex: Female
  Weight: 125.19 kg

DRUGS (18)
  1. BUSPIRONE HYDROCHLORIDE [Interacting]
     Active Substance: BUSPIRONE HYDROCHLORIDE
     Indication: Product used for unknown indication
     Dosage: ONE DAILY
  2. MIFEPRISTONE [Interacting]
     Active Substance: MIFEPRISTONE
     Indication: Cushing^s syndrome
     Dosage: QD
     Route: 048
     Dates: start: 20220315, end: 20220411
  3. APAP [Concomitant]
     Active Substance: ACETAMINOPHEN
  4. AMLODIPINE [Concomitant]
     Active Substance: AMLODIPINE BESYLATE
  5. CARVEDILOL [Concomitant]
     Active Substance: CARVEDILOL
  6. CELEXA [Concomitant]
     Active Substance: CITALOPRAM HYDROBROMIDE
  7. CYCLOBENZAPRINE [Concomitant]
     Active Substance: CYCLOBENZAPRINE
  8. FARXIGA [Concomitant]
     Active Substance: DAPAGLIFLOZIN PROPANEDIOL
  9. FLUCONAZOLE [Concomitant]
     Active Substance: FLUCONAZOLE
  10. HYDROCHLOROTHIAZIDE [Concomitant]
     Active Substance: HYDROCHLOROTHIAZIDE
  11. LOSARTAN [Concomitant]
     Active Substance: LOSARTAN
  12. LYUMJEV [Concomitant]
     Active Substance: INSULIN LISPRO-AABC
  13. OZEMPIC [Concomitant]
     Active Substance: SEMAGLUTIDE
  14. PANTOPRAZOLE [Concomitant]
     Active Substance: PANTOPRAZOLE
  15. SPIRONOLACTONE [Concomitant]
     Active Substance: SPIRONOLACTONE
  16. TOUJEO [Concomitant]
     Active Substance: INSULIN GLARGINE
  17. TRAMADOL [Concomitant]
     Active Substance: TRAMADOL
  18. .ALPHA.-TOCOPHEROL [Concomitant]
     Active Substance: .ALPHA.-TOCOPHEROL

REACTIONS (14)
  - Panic attack [Recovered/Resolved]
  - Cataract operation [Unknown]
  - Dry throat [Unknown]
  - Dysgeusia [Unknown]
  - Muscle spasms [Unknown]
  - Somnolence [Unknown]
  - Dry mouth [Not Recovered/Not Resolved]
  - Vomiting [Recovered/Resolved]
  - Diarrhoea [Recovered/Resolved]
  - Nausea [Not Recovered/Not Resolved]
  - Anxiety [Not Recovered/Not Resolved]
  - Constipation [Recovered/Resolved]
  - Dizziness [Unknown]
  - Drug interaction [Unknown]

NARRATIVE: CASE EVENT DATE: 20220425
